FAERS Safety Report 8904418 (Version 12)
Quarter: 2016Q4

REPORT INFORMATION
  Report Type: Spontaneous
  Country: US (occurrence: US)
  Receive Date: 20121112
  Receipt Date: 20161005
  Transmission Date: 20170207
  Serious: Yes (Hospitalization, Other)
  Sender: FDA-Public Use
  Company Number: US-009507513-1111USA02503

PATIENT
  Sex: Female
  Weight: 66.55 kg

DRUGS (11)
  1. ALENDRONATE SODIUM. [Suspect]
     Active Substance: ALENDRONATE SODIUM
     Indication: OSTEOPOROSIS
     Dosage: 70 MG, UNKNOWN
     Route: 048
     Dates: start: 200907, end: 201010
  2. CALCIUM (UNSPECIFIED) (+) VITAMIN D (UNSPECIFIED) [Concomitant]
     Active Substance: CALCIUM CARBONATE\VITAMIN D
     Indication: OSTEOPENIA
  3. VITAMINS (UNSPECIFIED) [Concomitant]
     Active Substance: VITAMINS
     Indication: PRODUCT USED FOR UNKNOWN INDICATION
     Dosage: UNK, QD
     Route: 065
     Dates: start: 1990, end: 201104
  4. FOSAMAX [Suspect]
     Active Substance: ALENDRONATE SODIUM
     Indication: OSTEOPENIA
     Dosage: 70 MG, QW
     Route: 048
     Dates: start: 200410, end: 200712
  5. ALENDRONATE SODIUM. [Suspect]
     Active Substance: ALENDRONATE SODIUM
     Indication: OSTEOPOROSIS
     Dosage: 70 MG, UNKNOWN
     Route: 048
     Dates: start: 20080522, end: 200902
  6. CALCIUM (UNSPECIFIED) (+) VITAMIN D (UNSPECIFIED) [Concomitant]
     Active Substance: CALCIUM CARBONATE\VITAMIN D
     Indication: OSTEOPOROSIS
     Dosage: UNK
     Route: 065
     Dates: start: 1990
  7. FORTEO [Concomitant]
     Active Substance: TERIPARATIDE
     Indication: OSTEOPOROSIS
     Dosage: 20 MICROGRAM, QD
     Route: 058
     Dates: start: 20111109
  8. FOSAMAX PLUS D [Suspect]
     Active Substance: ALENDRONATE SODIUM\CHOLECALCIFEROL
     Indication: OSTEOPOROSIS
     Dosage: 70MG/2800IU, QW
     Route: 048
     Dates: start: 200801, end: 200805
  9. FOSAMAX [Suspect]
     Active Substance: ALENDRONATE SODIUM
     Indication: OSTEOPOROSIS
     Dosage: 10 MG, QD
     Route: 048
     Dates: start: 2000, end: 200409
  10. FOSAMAX PLUS D [Suspect]
     Active Substance: ALENDRONATE SODIUM\CHOLECALCIFEROL
     Dosage: 70 MG/5800IU, UNKNOWN
     Route: 048
  11. ALENDRONATE SODIUM. [Suspect]
     Active Substance: ALENDRONATE SODIUM
     Indication: OSTEOPOROSIS
     Dosage: 70 MG, UNKNOWN
     Route: 048
     Dates: start: 200906

REACTIONS (96)
  - Open reduction of fracture [Unknown]
  - Fall [Not Recovered/Not Resolved]
  - Pain [Unknown]
  - Intervertebral disc protrusion [Unknown]
  - Nausea [Unknown]
  - Vomiting [Unknown]
  - Depression [Unknown]
  - Somnolence [Unknown]
  - Ankle fracture [Unknown]
  - Device breakage [Unknown]
  - Foot fracture [Unknown]
  - Polymyalgia rheumatica [Unknown]
  - Bone graft [Unknown]
  - Depression [Unknown]
  - Medical device removal [Unknown]
  - Neuralgia [Unknown]
  - Sleep disorder [Unknown]
  - Respiratory rate decreased [Unknown]
  - Hypercholesterolaemia [Unknown]
  - Arthritis [Unknown]
  - Glucose tolerance impaired [Unknown]
  - Irritable bowel syndrome [Unknown]
  - Intervertebral disc degeneration [Unknown]
  - Electrolyte imbalance [Unknown]
  - Arthralgia [Unknown]
  - Melaena [Unknown]
  - Constipation [Unknown]
  - Intramedullary rod insertion [Unknown]
  - Basal cell carcinoma [Unknown]
  - Fall [Unknown]
  - Radius fracture [Unknown]
  - Drug intolerance [Unknown]
  - Blood pressure fluctuation [Unknown]
  - Hypertension [Unknown]
  - Compression fracture [Unknown]
  - Scleroderma [Unknown]
  - Scoliosis [Unknown]
  - Anaemia [Recovered/Resolved]
  - Gait disturbance [Unknown]
  - Adenotonsillectomy [Unknown]
  - Fatigue [Unknown]
  - Injection site granuloma [Unknown]
  - Vitamin D deficiency [Unknown]
  - Insomnia [Unknown]
  - Arthralgia [Unknown]
  - Gastrooesophageal reflux disease [Unknown]
  - Arthralgia [Not Recovered/Not Resolved]
  - Internal fixation of fracture [Unknown]
  - Fracture nonunion [Unknown]
  - Overdose [Unknown]
  - Body height decreased [Unknown]
  - Migraine [Unknown]
  - Spinal flattening [Unknown]
  - Spinal osteoarthritis [Unknown]
  - Haematocrit decreased [Recovering/Resolving]
  - Drug hypersensitivity [Unknown]
  - Hip arthroplasty [Unknown]
  - Anaemia [Unknown]
  - Haematoma [Unknown]
  - Sedation [Unknown]
  - Humerus fracture [Unknown]
  - Developmental hip dysplasia [Unknown]
  - Foot fracture [Unknown]
  - Sciatica [Unknown]
  - Nerve compression [Unknown]
  - Foot fracture [Unknown]
  - Joint dislocation [Unknown]
  - Radicular pain [Unknown]
  - Poor quality sleep [Unknown]
  - Scleral discolouration [Unknown]
  - Kyphosis [Unknown]
  - Chills [Unknown]
  - Weight increased [Unknown]
  - Cholecystectomy [Unknown]
  - Upper limb fracture [Not Recovered/Not Resolved]
  - Femur fracture [Unknown]
  - Atypical femur fracture [Unknown]
  - Osteonecrosis of jaw [Unknown]
  - Sciatica [Unknown]
  - Radiotherapy [Unknown]
  - Arthropathy [Unknown]
  - Glaucoma [Unknown]
  - Bursitis [Unknown]
  - Pain in extremity [Unknown]
  - Abdominal discomfort [Unknown]
  - Osteoarthritis [Unknown]
  - Ankle fracture [Unknown]
  - Vertebral foraminal stenosis [Unknown]
  - Cataract [Unknown]
  - Rosacea [Unknown]
  - Diverticulum [Unknown]
  - Hypertensive heart disease [Unknown]
  - Hypoaesthesia [Unknown]
  - Anxiety [Unknown]
  - Epicondylitis [Unknown]
  - Back pain [Not Recovered/Not Resolved]

NARRATIVE: CASE EVENT DATE: 200006
